FAERS Safety Report 19697667 (Version 1)
Quarter: 2021Q3

REPORT INFORMATION
  Report Type: Spontaneous
  Country: FR (occurrence: FR)
  Receive Date: 20210813
  Receipt Date: 20210813
  Transmission Date: 20211014
  Serious: Yes (Other)
  Sender: FDA-Public Use
  Company Number: FR-MYLANLABS-2021M1049343

PATIENT
  Age: 7 Year
  Sex: Male
  Weight: 22 kg

DRUGS (17)
  1. TIENAM [Suspect]
     Active Substance: CILASTATIN SODIUM\IMIPENEM
     Indication: FEBRILE NEUTROPENIA
     Dosage: 1 BOLUS EVERY 6 HOURS
     Route: 040
     Dates: start: 20210115, end: 20210121
  2. FUNGIZONE [Concomitant]
     Active Substance: AMPHOTERICIN B
     Dosage: UNKNOWN
     Route: 048
  3. NALBUPHINE RENAUDIN [Concomitant]
     Active Substance: NALBUPHINE HYDROCHLORIDE
     Dosage: UNKNOWN
     Route: 042
  4. ONDANSETRON [Concomitant]
     Active Substance: ONDANSETRON
     Dosage: UNKNOWN
     Route: 042
  5. TIORFAN [Concomitant]
     Active Substance: RACECADOTRIL
     Dosage: UNKNOWN
     Route: 048
  6. DEXPANTHENOL. [Concomitant]
     Active Substance: DEXPANTHENOL
     Dosage: UNKNOWN
     Route: 003
  7. CASPOFUNGINE OHRE PHARMA [Concomitant]
     Active Substance: CASPOFUNGIN ACETATE
     Dosage: UNKNOWN
     Route: 042
  8. MORPHINE [Concomitant]
     Active Substance: MORPHINE
     Dosage: UNKNOWN
     Route: 042
  9. FUROSEMIDE RENAUDIN [Concomitant]
     Active Substance: FUROSEMIDE
     Dosage: UNKNOWN
     Route: 042
  10. ATARAX [Concomitant]
     Active Substance: HYDROXYZINE HYDROCHLORIDE
     Dosage: IF NECESSARY
     Route: 048
     Dates: start: 20210113, end: 20210122
  11. SOLUDACTONE [Concomitant]
     Active Substance: CANRENOATE POTASSIUM\TROMETHAMINE
     Dosage: UNKNOWN
     Route: 042
  12. VANCOMYCIN MYLAN [Suspect]
     Active Substance: VANCOMYCIN
     Indication: FEBRILE NEUTROPENIA
     Dosage: UNK
     Route: 042
     Dates: start: 20210113
  13. PHLOROGLUCINOL ARROW [Concomitant]
     Active Substance: PHLOROGLUCINOL
     Dosage: IF NECESSARY
     Route: 042
     Dates: start: 20210112, end: 20210128
  14. PARACETAMOL B BRAUN [Concomitant]
     Active Substance: ACETAMINOPHEN
     Dosage: 230 MILLIGRAM, QD
     Route: 042
     Dates: start: 20210116, end: 20210122
  15. KETAMINE RENAUDIN [Concomitant]
     Active Substance: KETAMINE
     Dosage: UNKNOWN
     Route: 042
  16. VITAMIN K [Concomitant]
     Active Substance: PHYTONADIONE
     Dosage: UNKNOWN
     Route: 042
  17. PLITICAN [Concomitant]
     Active Substance: ALIZAPRIDE HYDROCHLORIDE
     Dosage: UNKNOWN
     Route: 042

REACTIONS (1)
  - Seizure [Recovered/Resolved]

NARRATIVE: CASE EVENT DATE: 20210121
